FAERS Safety Report 20093912 (Version 3)
Quarter: 2022Q1

REPORT INFORMATION
  Report Type: Report from Study
  Country: CA (occurrence: CA)
  Receive Date: 20211121
  Receipt Date: 20220328
  Transmission Date: 20220424
  Serious: Yes (Other)
  Sender: FDA-Public Use
  Company Number: CA-JNJFOC-20211134626

PATIENT
  Age: 30 Year
  Sex: Female
  Weight: 52.8 kg

DRUGS (1)
  1. REMICADE [Suspect]
     Active Substance: INFLIXIMAB
     Indication: Colitis ulcerative
     Dosage: PATIENT LAST INFUSION ON 08-FEB-2022
     Route: 042
     Dates: start: 20161111

REACTIONS (9)
  - Beta haemolytic streptococcal infection [Recovering/Resolving]
  - Exposure during pregnancy [Not Recovered/Not Resolved]
  - Abdominal pain [Unknown]
  - Vitamin B12 deficiency [Unknown]
  - Iron deficiency [Unknown]
  - Fatigue [Unknown]
  - Dyspepsia [Unknown]
  - Urinary tract infection [Unknown]
  - Inappropriate schedule of product administration [Unknown]

NARRATIVE: CASE EVENT DATE: 20210101
